FAERS Safety Report 9208915 (Version 1)
Quarter: 2013Q2

REPORT INFORMATION
  Report Type: Report from Study
  Country: CA (occurrence: CA)
  Receive Date: 20130404
  Receipt Date: 20130404
  Transmission Date: 20140414
  Serious: Yes (Other)
  Sender: FDA-Public Use
  Company Number: CA-JNJFOC-20130317065

PATIENT
  Age: 69 Year
  Sex: Female
  Weight: 63.6 kg

DRUGS (13)
  1. REMICADE [Suspect]
     Indication: CROHN^S DISEASE
     Dosage: 4TH INFUSION
     Route: 042
     Dates: start: 20130325
  2. REMICADE [Suspect]
     Indication: CROHN^S DISEASE
     Route: 042
     Dates: start: 20121203
  3. XARELTO [Concomitant]
     Route: 065
  4. SYNTHROID [Concomitant]
     Route: 065
  5. CITALOPRAM [Concomitant]
     Route: 065
  6. RESPIRIDONE [Concomitant]
     Route: 065
  7. VIT-D [Concomitant]
     Route: 065
  8. CALCIUM [Concomitant]
     Route: 065
  9. COVERSYL [Concomitant]
     Route: 065
  10. VITAMIN B12 [Concomitant]
     Route: 065
  11. SPIRIVA [Concomitant]
     Route: 065
  12. VITAMINS NOS [Concomitant]
     Route: 065
  13. IMODIUM [Concomitant]
     Route: 065

REACTIONS (3)
  - Respiratory distress [Recovered/Resolved]
  - Infusion related reaction [Recovered/Resolved]
  - Pallor [Recovered/Resolved]
